FAERS Safety Report 25968013 (Version 1)
Quarter: 2025Q4

REPORT INFORMATION
  Report Type: Spontaneous
  Country: US (occurrence: US)
  Receive Date: 20251028
  Receipt Date: 20251028
  Transmission Date: 20260117
  Serious: No
  Sender: CELLTRION
  Company Number: US-CELLTRION INC.-2024US030881

PATIENT

DRUGS (1)
  1. INFLECTRA [Suspect]
     Active Substance: INFLIXIMAB-DYYB
     Indication: Colitis ulcerative
     Dosage: INFUSE 10MG PER KG EVERY 8 WEEKS, DOSE: 1266MG, 13, 100MG VIALS
     Route: 042
     Dates: start: 20241122

REACTIONS (2)
  - Incorrect dose administered by product [Unknown]
  - Overdose [Unknown]

NARRATIVE: CASE EVENT DATE: 20241122
